FAERS Safety Report 22128958 (Version 1)
Quarter: 2023Q1

REPORT INFORMATION
  Report Type: Report from Study
  Country: SA (occurrence: None)
  Receive Date: 20230323
  Receipt Date: 20230323
  Transmission Date: 20230418
  Serious: Yes (Other)
  Sender: FDA-Public Use
  Company Number: SA-Merck Healthcare KGaA-9390785

PATIENT
  Age: 10 Year
  Sex: Female

DRUGS (1)
  1. SAIZEN [Suspect]
     Active Substance: SOMATROPIN
     Indication: Growth hormone deficiency
     Route: 058
     Dates: start: 20230223

REACTIONS (3)
  - Migraine [Unknown]
  - Mood swings [Unknown]
  - Agitation [Unknown]

NARRATIVE: CASE EVENT DATE: 20230319
